FAERS Safety Report 20698561 (Version 2)
Quarter: 2022Q2

REPORT INFORMATION
  Report Type: Spontaneous
  Country: US (occurrence: US)
  Receive Date: 20220412
  Receipt Date: 20220513
  Transmission Date: 20220721
  Serious: Yes (Life-Threatening, Hospitalization, Other)
  Sender: FDA-Public Use
  Company Number: US-BRISTOL-MYERS SQUIBB COMPANY-2022-017015

PATIENT
  Age: 69 Year
  Sex: Female

DRUGS (2)
  1. APIXABAN [Suspect]
     Active Substance: APIXABAN
     Indication: Cerebrovascular accident prophylaxis
     Dosage: UNKNOWN
  2. DILTIAZEM [Interacting]
     Active Substance: DILTIAZEM
     Indication: Atrial fibrillation

REACTIONS (5)
  - Cardiac failure acute [Unknown]
  - Hypotension [Unknown]
  - Acute kidney injury [Recovered/Resolved]
  - Pericardial haemorrhage [Unknown]
  - Drug interaction [Recovered/Resolved]
